FAERS Safety Report 11496252 (Version 5)
Quarter: 2015Q4

REPORT INFORMATION
  Report Type: Spontaneous
  Country: US (occurrence: US)
  Receive Date: 20150911
  Receipt Date: 20151023
  Transmission Date: 20160304
  Serious: Yes (Hospitalization)
  Sender: FDA-Public Use
  Company Number: US-ACTELION-A-NJ2015-123663

PATIENT
  Age: 46 Year
  Sex: Female

DRUGS (11)
  1. K-TAB [Concomitant]
     Active Substance: POTASSIUM CHLORIDE
     Dosage: 10 MG, QD
  2. TRACLEER [Suspect]
     Active Substance: BOSENTAN
     Indication: PULMONARY HYPERTENSION
     Dosage: 125 MG, UNK
     Route: 048
  3. PEPCID [Concomitant]
     Active Substance: FAMOTIDINE
     Dosage: 40 MG, QD
  4. TORSEMIDE. [Concomitant]
     Active Substance: TORSEMIDE
     Dosage: 10 MG, QD
  5. ALDACTONE [Concomitant]
     Active Substance: SPIRONOLACTONE
     Dosage: 25 MG, QD
  6. ATARAX [Concomitant]
     Active Substance: HYDROXYZINE\HYDROXYZINE HYDROCHLORIDE
     Dosage: 25 MG, PRN
  7. COUMADIN [Concomitant]
     Active Substance: WARFARIN SODIUM
     Dosage: 10 MG, QD
  8. NORCO [Concomitant]
     Active Substance: ACETAMINOPHEN\HYDROCODONE BITARTRATE
     Dosage: 5-325 MG
  9. LANOXIN [Concomitant]
     Active Substance: DIGOXIN
     Dosage: 125 MG, QD
  10. VELETRI [Suspect]
     Active Substance: EPOPROSTENOL
     Indication: PULMONARY HYPERTENSION
     Dosage: 28 NG/KG, PER MIN
     Route: 042
     Dates: start: 20140925
  11. SILDENAFIL. [Concomitant]
     Active Substance: SILDENAFIL
     Dosage: 20 MG, UNK

REACTIONS (13)
  - Peripheral swelling [Recovered/Resolved]
  - Pyrexia [Recovered/Resolved]
  - Pain in jaw [Unknown]
  - Device related infection [Recovered/Resolved]
  - Catheter culture positive [Recovered/Resolved]
  - Sepsis [Recovered/Resolved]
  - Staphylococcal infection [Unknown]
  - Chills [Recovered/Resolved]
  - Pain [Recovered/Resolved]
  - Blood culture positive [Recovered/Resolved]
  - Thrombosis in device [Unknown]
  - Medical device change [Unknown]
  - Headache [Unknown]
